FAERS Safety Report 7951769-0 (Version None)
Quarter: 2011Q4

REPORT INFORMATION
  Report Type: 
  Country: None (occurrence: None)
  Receive Date: 20111201
  Receipt Date: 20111128
  Transmission Date: 20120403
  Serious: Yes (Other)
  Sender: FDA-Public Use
  Company Number: FI-BAYER-2011-114209

PATIENT
  Sex: Male

DRUGS (2)
  1. INFLUENZA VACCIN [Concomitant]
     Dosage: UNK
     Dates: start: 20111117, end: 20111117
  2. BETASERON [Suspect]
     Indication: MULTIPLE SCLEROSIS
     Dosage: 250 ?G, QOD
     Route: 058
     Dates: start: 19970101

REACTIONS (3)
  - DEAFNESS UNILATERAL [None]
  - CHILLS [None]
  - PYREXIA [None]
